FAERS Safety Report 18894905 (Version 13)
Quarter: 2021Q4

REPORT INFORMATION
  Report Type: Other
  Country: GB (occurrence: GB)
  Receive Date: 20210216
  Receipt Date: 20211025
  Transmission Date: 20220303
  Serious: Yes (Other)
  Sender: FDA-Public Use
  Company Number: GB-CELLTRION INC.-2019GB024930

PATIENT

DRUGS (57)
  1. INFLIXIMAB [Suspect]
     Active Substance: INFLIXIMAB
     Indication: Product used for unknown indication
     Dosage: REMSIMA 470
     Route: 065
  2. INFLIXIMAB [Suspect]
     Active Substance: INFLIXIMAB
     Dosage: 235 MG
     Route: 065
  3. INFLIXIMAB [Suspect]
     Active Substance: INFLIXIMAB
     Dosage: 235 MG
     Route: 065
  4. INFLIXIMAB [Suspect]
     Active Substance: INFLIXIMAB
     Dosage: 235 MG, (DOSE FORM: 194)
     Route: 065
  5. INFLIXIMAB [Suspect]
     Active Substance: INFLIXIMAB
     Dosage: 235 MG,  (DOSE FORM: 194)
     Route: 065
  6. INFLIXIMAB [Suspect]
     Active Substance: INFLIXIMAB
     Dosage: 235 MG (DOSE FORM: 194)
     Route: 065
  7. INFLIXIMAB [Suspect]
     Active Substance: INFLIXIMAB
     Dosage: 235 MG (DOSE FORM: 194)
     Route: 065
  8. INFLIXIMAB [Suspect]
     Active Substance: INFLIXIMAB
     Dosage: 263 MG
     Route: 065
  9. INFLIXIMAB [Suspect]
     Active Substance: INFLIXIMAB
     Dosage: 263 MG
     Route: 065
  10. INFLIXIMAB [Suspect]
     Active Substance: INFLIXIMAB
     Dosage: UNK
     Route: 065
  11. INFLIXIMAB [Suspect]
     Active Substance: INFLIXIMAB
     Dosage: UNK
     Route: 065
  12. INFLIXIMAB [Suspect]
     Active Substance: INFLIXIMAB
     Dosage: 263 MG
     Route: 065
  13. INFLIXIMAB [Suspect]
     Active Substance: INFLIXIMAB
     Dosage: 263 MG
     Route: 065
  14. INFLIXIMAB [Suspect]
     Active Substance: INFLIXIMAB
     Dosage: UNK
     Route: 065
  15. INFLIXIMAB [Suspect]
     Active Substance: INFLIXIMAB
     Dosage: UNK
     Route: 065
  16. INFLIXIMAB [Suspect]
     Active Substance: INFLIXIMAB
     Dosage: DOSE REINTRODUCED
     Route: 065
  17. INFLIXIMAB [Suspect]
     Active Substance: INFLIXIMAB
     Dosage: DOSE REINTRODUCED
     Route: 065
  18. INFLIXIMAB [Suspect]
     Active Substance: INFLIXIMAB
     Dosage: 240 MG
     Route: 042
     Dates: start: 20210310
  19. INFLIXIMAB [Suspect]
     Active Substance: INFLIXIMAB
     Dosage: 240 MG
     Route: 042
     Dates: start: 20210310
  20. INFLIXIMAB [Suspect]
     Active Substance: INFLIXIMAB
     Indication: Product used for unknown indication
     Dosage: UNK
     Route: 065
  21. INFLIXIMAB [Suspect]
     Active Substance: INFLIXIMAB
     Dosage: UNK
     Route: 065
  22. SODIUM CHLORIDE [Suspect]
     Active Substance: SODIUM CHLORIDE
     Indication: Medication dilution
     Dosage: UNK
     Route: 065
  23. SODIUM CHLORIDE [Suspect]
     Active Substance: SODIUM CHLORIDE
     Dosage: UNK
     Route: 065
  24. SODIUM CHLORIDE [Suspect]
     Active Substance: SODIUM CHLORIDE
     Dosage: UNK
     Route: 065
  25. SODIUM CHLORIDE [Suspect]
     Active Substance: SODIUM CHLORIDE
     Dosage: UNK
     Route: 065
  26. SODIUM CHLORIDE [Suspect]
     Active Substance: SODIUM CHLORIDE
     Dosage: UNK (DOSE FORM: 231)
     Route: 065
  27. SODIUM CHLORIDE [Suspect]
     Active Substance: SODIUM CHLORIDE
     Dosage: UNK (DOSE FORM: 231)
     Route: 065
  28. SODIUM CHLORIDE [Suspect]
     Active Substance: SODIUM CHLORIDE
     Dosage: UNK
     Route: 065
  29. SODIUM CHLORIDE [Suspect]
     Active Substance: SODIUM CHLORIDE
     Dosage: UNK
     Route: 065
  30. SODIUM CHLORIDE [Suspect]
     Active Substance: SODIUM CHLORIDE
     Dosage: UNK
     Route: 065
  31. SODIUM CHLORIDE [Suspect]
     Active Substance: SODIUM CHLORIDE
     Dosage: UNK
     Route: 065
  32. SODIUM CHLORIDE [Suspect]
     Active Substance: SODIUM CHLORIDE
     Dosage: UNK
     Route: 065
  33. SODIUM CHLORIDE [Suspect]
     Active Substance: SODIUM CHLORIDE
     Dosage: UNK
     Route: 065
  34. SODIUM CHLORIDE [Suspect]
     Active Substance: SODIUM CHLORIDE
     Dosage: UNK
     Route: 065
  35. SODIUM CHLORIDE [Suspect]
     Active Substance: SODIUM CHLORIDE
     Dosage: UNK
     Route: 065
  36. SODIUM CHLORIDE [Suspect]
     Active Substance: SODIUM CHLORIDE
     Dosage: DOSE REINTRODUCED.
     Route: 065
  37. SODIUM CHLORIDE [Suspect]
     Active Substance: SODIUM CHLORIDE
     Dosage: DOSE REINTRODUCED.
     Route: 065
  38. SODIUM CHLORIDE [Suspect]
     Active Substance: SODIUM CHLORIDE
     Dosage: 250 ML (PHARMACEUTICAL DOSE FORM: 230)
     Route: 042
     Dates: start: 20210310
  39. SODIUM CHLORIDE [Suspect]
     Active Substance: SODIUM CHLORIDE
     Dosage: 250 ML (PHARMACEUTICAL DOSE FORM: 230)
     Route: 042
     Dates: start: 20210310
  40. WATER [Suspect]
     Active Substance: WATER
     Indication: Medication dilution
     Dosage: UNK
     Route: 065
  41. WATER [Suspect]
     Active Substance: WATER
     Dosage: UNK
     Route: 065
  42. WATER [Suspect]
     Active Substance: WATER
     Dosage: UNK; (DOSE FORM: 236)
     Route: 065
  43. WATER [Suspect]
     Active Substance: WATER
     Dosage: UNK; (DOSE FORM: 236)
     Route: 065
  44. WATER [Suspect]
     Active Substance: WATER
     Dosage: UNK (DOSE FORM: 236)
     Route: 065
  45. WATER [Suspect]
     Active Substance: WATER
     Dosage: UNK (DOSE FORM: 236)
     Route: 065
  46. WATER [Suspect]
     Active Substance: WATER
     Dosage: UNK
     Route: 065
  47. WATER [Suspect]
     Active Substance: WATER
     Dosage: UNK
     Route: 065
  48. WATER [Suspect]
     Active Substance: WATER
     Dosage: UNK
     Route: 065
  49. WATER [Suspect]
     Active Substance: WATER
     Dosage: UNK
     Route: 065
  50. WATER [Suspect]
     Active Substance: WATER
     Dosage: UNK
     Route: 065
  51. WATER [Suspect]
     Active Substance: WATER
     Dosage: UNK
     Route: 065
  52. WATER [Suspect]
     Active Substance: WATER
     Dosage: UNK
     Route: 065
  53. WATER [Suspect]
     Active Substance: WATER
     Dosage: UNK
     Route: 065
  54. WATER [Suspect]
     Active Substance: WATER
     Dosage: DOSE REINTRODUCED
     Route: 065
  55. WATER [Suspect]
     Active Substance: WATER
     Dosage: DOSE REINTRODUCED
     Route: 065
  56. WATER [Suspect]
     Active Substance: WATER
     Dosage: UNK (PHARMACEUTICAL DOSE FORM: 236)
     Route: 042
     Dates: start: 20210310
  57. WATER [Suspect]
     Active Substance: WATER
     Dosage: UNK (PHARMACEUTICAL DOSE FORM: 236)
     Route: 042
     Dates: start: 20210310

REACTIONS (12)
  - Nephrolithiasis [Unknown]
  - Subcutaneous abscess [Unknown]
  - Weight increased [Unknown]
  - Abdominal mass [Unknown]
  - Abdominal pain [Unknown]
  - Diarrhoea [Unknown]
  - Malaise [Unknown]
  - Nasopharyngitis [Unknown]
  - Fatigue [Unknown]
  - Abdominal pain upper [Unknown]
  - Weight decreased [Unknown]
  - Asthenia [Unknown]

NARRATIVE: CASE EVENT DATE: 20210601
